FAERS Safety Report 17278452 (Version 1)
Quarter: 2020Q1

REPORT INFORMATION
  Report Type: Spontaneous
  Country: US (occurrence: US)
  Receive Date: 20200116
  Receipt Date: 20200116
  Transmission Date: 20200409
  Serious: Yes (Hospitalization)
  Sender: FDA-Public Use
  Company Number: US-OTSUKA-2020_001151

PATIENT
  Age: 31 Year
  Sex: Male

DRUGS (2)
  1. REXULTI [Suspect]
     Active Substance: BREXPIPRAZOLE
     Indication: SCHIZOAFFECTIVE DISORDER
     Dosage: 4 MG, QD
     Route: 048
     Dates: start: 2019
  2. REXULTI [Suspect]
     Active Substance: BREXPIPRAZOLE
     Indication: BIPOLAR DISORDER
     Dosage: 4 MG, QD
     Route: 048
     Dates: start: 20200107

REACTIONS (6)
  - Hyperhidrosis [Not Recovered/Not Resolved]
  - Restlessness [Not Recovered/Not Resolved]
  - Product use in unapproved indication [Unknown]
  - Akathisia [Not Recovered/Not Resolved]
  - Heart rate increased [Unknown]
  - Irritability [Not Recovered/Not Resolved]

NARRATIVE: CASE EVENT DATE: 2019
